FAERS Safety Report 8774664 (Version 3)
Quarter: 2012Q4

REPORT INFORMATION
  Report Type: 
  Country: US (occurrence: US)
  Receive Date: 20120907
  Receipt Date: 20121030
  Transmission Date: 20130627
  Serious: Yes (Other)
  Sender: FDA-Public Use
  Company Number: US-AMGEN-USASP2012055671

PATIENT
  Age: 52 Year
  Sex: Male
  Weight: 104 kg

DRUGS (5)
  1. ENBREL [Suspect]
     Indication: PSORIATIC ARTHROPATHY
     Dosage: 50 mg, qwk
     Route: 058
     Dates: start: 20070301, end: 20120201
  2. TENORMIN [Concomitant]
     Indication: HYPERTENSION
     Dosage: 50 mg, qd
     Route: 048
     Dates: start: 200804
  3. NORVASC [Concomitant]
     Indication: HYPERTENSION
     Dosage: 5 mg, qd
     Route: 048
     Dates: start: 200811
  4. CIALIS [Concomitant]
     Dosage: 5 mg, prn
     Route: 048
     Dates: start: 201003
  5. SKIN ZINC [Concomitant]
     Dosage: UNK UNK, qd
     Route: 061

REACTIONS (7)
  - Abdominal pain [Recovered/Resolved]
  - Malignant tumour excision [Recovered/Resolved]
  - Nephrolithiasis [Unknown]
  - Hepatic steatosis [Unknown]
  - Hepatocellular injury [Unknown]
  - Prostatomegaly [Unknown]
  - Diverticulum intestinal [Unknown]
